FAERS Safety Report 5577786-6 (Version None)
Quarter: 2007Q4

REPORT INFORMATION
  Report Type: 
  Country: None (occurrence: None)
  Receive Date: 20071227
  Receipt Date: 20071218
  Transmission Date: 20080405
  Serious: Yes (Other)
  Sender: FDA-Public Use
  Company Number: GB-1164817

PATIENT
  Age: 57 Year
  Sex: Female

DRUGS (3)
  1. FLUORESCITE [Suspect]
     Dosage: 1ML OF 5% DILUTED WITH 8ML CSF
     Route: 037
  2. CARBAMAZEPINE [Concomitant]
  3. AMITRIPTYLINE HCL [Concomitant]

REACTIONS (5)
  - CONFUSIONAL STATE [None]
  - GRAND MAL CONVULSION [None]
  - LETHARGY [None]
  - MENINGITIS CHEMICAL [None]
  - PETIT MAL EPILEPSY [None]
